FAERS Safety Report 4539705-0 (Version None)
Quarter: 2004Q4

REPORT INFORMATION
  Report Type: 
  Country: None (occurrence: None)
  Receive Date: 20041228
  Receipt Date: 20041217
  Transmission Date: 20050328
  Serious: Yes (Other)
  Sender: FDA-Public Use
  Company Number: DE-JNJFOC-20041202916

PATIENT
  Sex: Male

DRUGS (6)
  1. RISPERDAL [Suspect]
     Indication: DELUSION
     Route: 049
  2. RISPERDAL [Suspect]
     Indication: DEPRESSION
     Route: 049
  3. REMERGIL [Concomitant]
     Indication: DELUSION
     Route: 049
  4. REMERGIL [Concomitant]
     Indication: DEPRESSION
     Route: 049
  5. CIPRAMIL [Concomitant]
     Indication: DELUSION
     Route: 049
  6. CIPRAMIL [Concomitant]
     Indication: DEPRESSION
     Dosage: DOSE: 20-40 MG
     Route: 049

REACTIONS (4)
  - ALANINE AMINOTRANSFERASE INCREASED [None]
  - ASPARTATE AMINOTRANSFERASE INCREASED [None]
  - BLINDNESS [None]
  - VISUAL FIELD DEFECT [None]
